FAERS Safety Report 17083984 (Version 2)
Quarter: 2019Q4

REPORT INFORMATION
  Report Type: Spontaneous
  Country: BR (occurrence: BR)
  Receive Date: 20191127
  Receipt Date: 20191209
  Transmission Date: 20200122
  Serious: Yes (Death, Other)
  Sender: FDA-Public Use
  Company Number: NVSC2019BR045535

PATIENT
  Age: 58 Year
  Sex: Male

DRUGS (1)
  1. ENTRESTO [Suspect]
     Active Substance: SACUBITRIL\VALSARTAN
     Indication: CARDIAC FAILURE
     Dosage: 50 MG, BID
     Route: 048
     Dates: start: 20191118

REACTIONS (13)
  - Chest discomfort [Unknown]
  - Cardiogenic shock [Fatal]
  - Hypotension [Fatal]
  - Chest pain [Unknown]
  - Exercise tolerance decreased [Unknown]
  - Fatigue [Unknown]
  - Bradycardia [Unknown]
  - Bradyarrhythmia [Unknown]
  - Dizziness [Unknown]
  - Congestive cardiomyopathy [Unknown]
  - Malaise [Unknown]
  - Oedema peripheral [Unknown]
  - Dyspnoea [Unknown]

NARRATIVE: CASE EVENT DATE: 20191118
